FAERS Safety Report 20623324 (Version 1)
Quarter: 2022Q1

REPORT INFORMATION
  Report Type: Spontaneous
  Country: FR (occurrence: FR)
  Receive Date: 20220322
  Receipt Date: 20220322
  Transmission Date: 20220424
  Serious: Yes (Hospitalization)
  Sender: FDA-Public Use
  Company Number: None

PATIENT
  Age: 48 Year
  Sex: Male

DRUGS (2)
  1. TRAMADOL [Suspect]
     Active Substance: TRAMADOL
     Indication: Product used for unknown indication
     Dosage: UNK, (NP)
     Route: 048
     Dates: start: 20220118, end: 20220118
  2. ACETAMINOPHEN [Suspect]
     Active Substance: ACETAMINOPHEN
     Indication: Product used for unknown indication
     Dosage: 10 GRAM
     Route: 048
     Dates: start: 20220118, end: 20220118

REACTIONS (6)
  - Respiratory depression [Recovered/Resolved]
  - Bradycardia [Recovered/Resolved]
  - Poisoning deliberate [Recovered/Resolved]
  - Miosis [Recovered/Resolved]
  - Somnolence [Recovered/Resolved]
  - Intentional overdose [Unknown]

NARRATIVE: CASE EVENT DATE: 20220118
